FAERS Safety Report 17888187 (Version 3)
Quarter: 2020Q2

REPORT INFORMATION
  Report Type: Spontaneous
  Country: US (occurrence: US)
  Receive Date: 20200612
  Receipt Date: 20200622
  Transmission Date: 20200714
  Serious: No
  Sender: FDA-Public Use
  Company Number: NVSC2020US163356

PATIENT
  Sex: Male

DRUGS (1)
  1. SANDOSTATIN LAR DEPOT [Suspect]
     Active Substance: OCTREOTIDE ACETATE
     Indication: PRODUCT USED FOR UNKNOWN INDICATION
     Dosage: 30 MG, QMO
     Route: 065

REACTIONS (6)
  - Dizziness [Unknown]
  - Stress [Unknown]
  - Agitation [Unknown]
  - Wrong technique in product usage process [Unknown]
  - Serum serotonin increased [Unknown]
  - Intercepted product administration error [Unknown]
